FAERS Safety Report 8922692 (Version 2)
Quarter: 2012Q4

REPORT INFORMATION
  Report Type: 
  Country: US (occurrence: None)
  Receive Date: 20121115
  Receipt Date: 20121129
  Transmission Date: 20130627
  Serious: Yes (Other)
  Sender: FDA-Public Use
  Company Number: JPI-P-026179

PATIENT
  Age: 36 Year
  Sex: Female
  Weight: 79.38 kg

DRUGS (9)
  1. XYREM [Suspect]
     Indication: CATAPLEXY
     Dosage: (Unknown), Oral
     Route: 048
     Dates: start: 20120411, end: 2012
  2. XYREM [Suspect]
     Indication: EXCESSIVE DAYTIME SLEEPINESS
     Dosage: (Unknown), Oral
     Route: 048
     Dates: start: 20120411, end: 2012
  3. XYREM [Suspect]
     Indication: CATAPLEXY
     Dosage: 9 gm (4.5 gm, 2 in 1 d), oral
     Route: 048
     Dates: start: 2012
  4. XYREM [Suspect]
     Indication: EXCESSIVE DAYTIME SLEEPINESS
     Dosage: 9 gm (4.5 gm, 2 in 1 d), oral
     Route: 048
     Dates: start: 2012
  5. ESTROGENS (POULTICE OR PATCH) [Concomitant]
  6. CETIRIZINE HYDROCHLORIDE [Concomitant]
  7. MOMETASONE FUROATE [Concomitant]
  8. PROGESTERONE W/ TESTOSTEROHE [Concomitant]
  9. TESTOSTERONE [Concomitant]

REACTIONS (10)
  - Anaphylactic reaction [None]
  - Dysphonia [None]
  - Asthma [None]
  - Abscess [None]
  - Ear infection [None]
  - Ear congestion [None]
  - Hypoaesthesia [None]
  - Migraine [None]
  - Neck pain [None]
  - Sjogren^s syndrome [None]
